FAERS Safety Report 5956386-X (Version None)
Quarter: 2008Q4

REPORT INFORMATION
  Report Type: 
  Country: None (occurrence: None)
  Receive Date: 20081118
  Receipt Date: 20081113
  Transmission Date: 20090506
  Serious: Yes (Other)
  Sender: FDA-Public Use
  Company Number: HR-WYE-H06828308

PATIENT
  Age: 58 Year
  Sex: Male

DRUGS (3)
  1. TAZOCIN [Suspect]
     Indication: LIVER ABSCESS
     Route: 042
     Dates: start: 20081007, end: 20081009
  2. DOXYCYCLINE [Concomitant]
     Indication: LIVER ABSCESS
     Dosage: 2 X 100 G
     Dates: start: 20081007
  3. OCTAGAM [Suspect]
     Dosage: 20 GR
     Dates: start: 20081007

REACTIONS (3)
  - LIP SWELLING [None]
  - SPEECH DISORDER [None]
  - SWOLLEN TONGUE [None]
